FAERS Safety Report 5750737-7 (Version None)
Quarter: 2008Q2

REPORT INFORMATION
  Report Type: 
  Country: None (occurrence: None)
  Receive Date: 20080523
  Receipt Date: 20080523
  Transmission Date: 20081010
  Serious: Yes (Hospitalization)
  Sender: FDA-Public Use
  Company Number: None

PATIENT
  Age: 37 Year
  Sex: Male
  Weight: 100 kg

DRUGS (3)
  1. IBUROFEN [Suspect]
     Indication: PAIN
     Dosage: 800 MG Q12H PO  RECENT
     Route: 048
  2. CLARITIN [Concomitant]
  3. IBUROFEN [Concomitant]

REACTIONS (4)
  - DUODENAL ULCER [None]
  - HAEMATEMESIS [None]
  - HYPOTENSION [None]
  - LOSS OF CONSCIOUSNESS [None]
